FAERS Safety Report 5614721-6 (Version None)
Quarter: 2008Q1

REPORT INFORMATION
  Report Type: 
  Country: None (occurrence: None)
  Receive Date: 20080131
  Receipt Date: 20080121
  Transmission Date: 20080703
  Serious: Yes (Hospitalization)
  Sender: FDA-Public Use
  Company Number: 2008-00346

PATIENT
  Age: 2 Month
  Sex: Male
  Weight: 5 kg

DRUGS (3)
  1. VECURONIUM BROMIDE [Suspect]
     Indication: ENDOTRACHEAL INTUBATION
     Dosage: SINGLE, INTRAVENOUS
     Route: 042
     Dates: start: 20070101, end: 20070101
  2. SEVOFLURANE [Suspect]
     Indication: ANAESTHESIA
     Dosage: SINGLE, RESPIRATORY
     Route: 055
     Dates: start: 20070101, end: 20070101
  3. NITROUS OXIDE W/ OXYGEN [Suspect]
     Indication: ANAESTHESIA
     Dosage: SINGLE, RESPIRATORY
     Route: 055
     Dates: start: 20070101, end: 20070101

REACTIONS (1)
  - DYSTONIA [None]
